FAERS Safety Report 12777432 (Version 2)
Quarter: 2016Q4

REPORT INFORMATION
  Report Type: Spontaneous
  Country: US (occurrence: US)
  Receive Date: 20160924
  Receipt Date: 20161018
  Transmission Date: 20170207
  Serious: No
  Sender: FDA-Public Use
  Company Number: US-009507513-1609USA004405

PATIENT
  Age: 64 Year
  Sex: Male

DRUGS (3)
  1. NIACIN. [Concomitant]
     Active Substance: NIACIN
     Dosage: 1000 MG, 1 DAILY
  2. CINNAMON. [Concomitant]
     Active Substance: CINNAMON
     Dosage: TABLET 1 DAILY
     Route: 048
  3. PROSCAR [Suspect]
     Active Substance: FINASTERIDE
     Indication: BENIGN PROSTATIC HYPERPLASIA
     Dosage: 5 MG, QD
     Route: 048

REACTIONS (2)
  - Retrograde ejaculation [Unknown]
  - Loss of libido [Unknown]
